FAERS Safety Report 11162942 (Version 1)
Quarter: 2015Q2

REPORT INFORMATION
  Report Type: Spontaneous
  Country: US (occurrence: US)
  Receive Date: 20150604
  Receipt Date: 20150604
  Transmission Date: 20150821
  Serious: No
  Sender: FDA-Public Use
  Company Number: US-SA-2015SA021561

PATIENT
  Age: 87 Year
  Sex: Female

DRUGS (2)
  1. LANTUS SOLOSTAR [Suspect]
     Active Substance: INSULIN GLARGINE
     Dosage: DOSE:30 UNIT(S)
     Route: 065
     Dates: start: 2009
  2. SOLOSTAR [Suspect]
     Active Substance: DEVICE
     Dates: start: 2009

REACTIONS (5)
  - Blood glucose increased [Unknown]
  - Tremor [Unknown]
  - Dysgraphia [Unknown]
  - Mobility decreased [Unknown]
  - Injury associated with device [Unknown]
